FAERS Safety Report 6738231-8 (Version None)
Quarter: 2010Q2

REPORT INFORMATION
  Report Type: 
  Country: None (occurrence: None)
  Receive Date: 20100524
  Receipt Date: 20100514
  Transmission Date: 20101027
  Serious: Yes (Hospitalization)
  Sender: FDA-Public Use
  Company Number: A0790551A

PATIENT
  Age: 47 Year
  Sex: Female

DRUGS (10)
  1. AVANDIA [Suspect]
     Dosage: 8MG TWICE PER DAY
     Route: 048
     Dates: start: 20020101, end: 20070601
  2. NEURONTIN [Concomitant]
  3. VICODIN [Concomitant]
  4. GLUCOTROL [Concomitant]
  5. PRAVACHOL [Concomitant]
  6. LISINOPRIL [Concomitant]
  7. IMDUR [Concomitant]
  8. ALDACTONE [Concomitant]
  9. GLUCOPHAGE [Concomitant]
  10. LOTENSIN [Concomitant]

REACTIONS (2)
  - CARDIAC FAILURE CONGESTIVE [None]
  - MYOCARDIAL INFARCTION [None]
